FAERS Safety Report 22088055 (Version 2)
Quarter: 2023Q4

REPORT INFORMATION
  Report Type: Report from Study
  Country: US (occurrence: US)
  Receive Date: 20230313
  Receipt Date: 20231025
  Transmission Date: 20240109
  Serious: No
  Sender: FDA-Public Use
  Company Number: US-IDORSIA-003899-2023-US

PATIENT
  Sex: Female

DRUGS (2)
  1. QUVIVIQ [Suspect]
     Active Substance: DARIDOREXANT
     Indication: Insomnia
     Dosage: 100 MG, QD (TWO 50 MG)
     Route: 048
     Dates: start: 20230302
  2. QUVIVIQ [Suspect]
     Active Substance: DARIDOREXANT
     Dosage: 50 MG, QD
     Route: 048

REACTIONS (2)
  - Intentional overdose [Recovering/Resolving]
  - Hypersomnia [Recovering/Resolving]
